FAERS Safety Report 25838662 (Version 1)
Quarter: 2025Q3

REPORT INFORMATION
  Report Type: Spontaneous
  Country: JP (occurrence: JP)
  Receive Date: 20250924
  Receipt Date: 20250924
  Transmission Date: 20251021
  Serious: Yes (Hospitalization)
  Sender: NOVITIUM PHARMA
  Company Number: JP-NOVITIUMPHARMA-2025JPNVP02363

PATIENT
  Age: 41 Year
  Sex: Female

DRUGS (3)
  1. LEVOFLOXACIN [Suspect]
     Active Substance: LEVOFLOXACIN
     Indication: Plasma cell mastitis
  2. LEVOFLOXACIN [Suspect]
     Active Substance: LEVOFLOXACIN
     Indication: Plasma cell mastitis
  3. FAROPENEM [Concomitant]
     Active Substance: FAROPENEM
     Route: 048

REACTIONS (2)
  - Vulvovaginal candidiasis [Unknown]
  - Intentional product misuse [Unknown]
